FAERS Safety Report 18214234 (Version 1)
Quarter: 2020Q3

REPORT INFORMATION
  Report Type: Spontaneous
  Country: US (occurrence: US)
  Receive Date: 20200831
  Receipt Date: 20200831
  Transmission Date: 20201103
  Serious: Yes (Other)
  Sender: FDA-Public Use
  Company Number: US-ALLERGAN-2032522US

PATIENT
  Sex: Female

DRUGS (2)
  1. DIETHYLPROPION [Suspect]
     Active Substance: DIETHYLPROPION
     Indication: WEIGHT DECREASED
     Dosage: 50 MG, BID
  2. FLUOXETINE HCL UNK [Suspect]
     Active Substance: FLUOXETINE HYDROCHLORIDE
     Indication: WEIGHT DECREASED
     Dosage: 20 MG, QD

REACTIONS (3)
  - Off label use [Unknown]
  - Spinal cord infarction [Unknown]
  - Cerebellar infarction [Unknown]
